FAERS Safety Report 25734759 (Version 2)
Quarter: 2025Q3

REPORT INFORMATION
  Report Type: Spontaneous
  Country: US (occurrence: US)
  Receive Date: 20250828
  Receipt Date: 20250828
  Transmission Date: 20251021
  Serious: No
  Sender: GLAXOSMITHKLINE
  Company Number: US-GSK-US2025AMR108668

PATIENT

DRUGS (3)
  1. BENLYSTA [Suspect]
     Active Substance: BELIMUMAB
     Indication: Neuropathy peripheral
  2. BENLYSTA [Suspect]
     Active Substance: BELIMUMAB
     Indication: Gastrooesophageal reflux disease
  3. BENLYSTA [Suspect]
     Active Substance: BELIMUMAB
     Indication: Sensation of foreign body

REACTIONS (1)
  - Off label use [Unknown]
